FAERS Safety Report 15022289 (Version 2)
Quarter: 2018Q2

REPORT INFORMATION
  Report Type: Spontaneous
  Country: ES (occurrence: ES)
  Receive Date: 20180618
  Receipt Date: 20180622
  Transmission Date: 20180711
  Serious: Yes (Hospitalization, Other)
  Sender: FDA-Public Use
  Company Number: ES-PFIZER INC-2018242116

PATIENT
  Age: 66 Year
  Sex: Male

DRUGS (2)
  1. PACLITAXEL. [Suspect]
     Active Substance: PACLITAXEL
     Indication: ADENOCARCINOMA GASTRIC
     Dosage: 80 MG/M2, ONCE A WEEK DURING 3 WEEKS OF EVERY 28-DAY CYCLE
     Route: 042
     Dates: start: 2014
  2. RAMUCIRUMAB [Suspect]
     Active Substance: RAMUCIRUMAB
     Indication: ADENOCARCINOMA GASTRIC
     Dosage: 8 MG/KG, EVERY TWO WEEKS
     Route: 042
     Dates: start: 2014

REACTIONS (2)
  - Upper gastrointestinal haemorrhage [Unknown]
  - Haemangioma of skin [Recovering/Resolving]

NARRATIVE: CASE EVENT DATE: 2014
